FAERS Safety Report 6600690-9 (Version None)
Quarter: 2010Q1

REPORT INFORMATION
  Report Type: 
  Country: None (occurrence: None)
  Receive Date: 20100223
  Receipt Date: 20100223
  Transmission Date: 20100710
  Serious: Yes (Other)
  Sender: FDA-Public Use
  Company Number: None

PATIENT
  Sex: Female
  Weight: 56.246 kg

DRUGS (2)
  1. HYDROCODONE BITARTRATE + ACETAMINOPHEN [Suspect]
     Indication: HERPES ZOSTER
     Dosage: 1 TO 1 1/2 TABS EVERY 4 HRS AS NEEDED BY MOUTH
     Route: 048
     Dates: start: 20100120, end: 20100122
  2. HYDROCODONE BITARTRATE + ACETAMINOPHEN [Suspect]
     Indication: PAIN
     Dosage: 1 TO 1 1/2 TABS EVERY 4 HRS AS NEEDED BY MOUTH
     Route: 048
     Dates: start: 20100120, end: 20100122

REACTIONS (4)
  - ABDOMINAL PAIN UPPER [None]
  - NO THERAPEUTIC RESPONSE [None]
  - PAIN [None]
  - RASH ERYTHEMATOUS [None]
